FAERS Safety Report 8503315 (Version 4)
Quarter: 2013Q2

REPORT INFORMATION
  Report Type: Report from Study
  Country: JP (occurrence: JP)
  Receive Date: 20120411
  Receipt Date: 20130530
  Transmission Date: 20140414
  Serious: Yes (Death, Hospitalization, Other)
  Sender: FDA-Public Use
  Company Number: PHHY2010JP37832

PATIENT
  Age: 44 Year
  Sex: Female
  Weight: 47 kg

DRUGS (7)
  1. AMN107 [Suspect]
     Indication: CHRONIC MYELOID LEUKAEMIA TRANSFORMATION
     Dosage: 400 MG, DAILY
     Route: 048
     Dates: start: 20100331, end: 20100404
  2. AMN107 [Suspect]
     Dosage: 400 MG, TWICE IN A WEEK
     Route: 048
     Dates: start: 20100411, end: 20100418
  3. AMN107 [Suspect]
     Dosage: 400 MG, TWICE EVERY OTHER DAY
     Route: 048
     Dates: start: 20100419, end: 20100425
  4. AMN107 [Suspect]
     Dosage: 400 MG,TWICE IN A WEEK
     Route: 048
     Dates: start: 20100426, end: 20100505
  5. DESMOPRESSIN [Concomitant]
     Dosage: 20 UG, UNK
     Dates: start: 199805, end: 20100505
  6. OMEPRAL [Concomitant]
     Dosage: 20 MG, UNK
     Route: 048
     Dates: start: 20081001, end: 20100505
  7. LENDORMIN [Concomitant]
     Dosage: 0.5 MG, UNK
     Route: 048
     Dates: start: 20081001, end: 20100505

REACTIONS (7)
  - Chronic myeloid leukaemia [Fatal]
  - Malignant neoplasm progression [Fatal]
  - Cellulitis [Recovered/Resolved]
  - Agranulocytosis [Recovered/Resolved]
  - Platelet count decreased [Not Recovered/Not Resolved]
  - Haemoglobin decreased [Not Recovered/Not Resolved]
  - Drug ineffective [Unknown]
